FAERS Safety Report 4323730-9 (Version None)
Quarter: 2004Q1

REPORT INFORMATION
  Report Type: 
  Country: None (occurrence: None)
  Receive Date: 20040323
  Receipt Date: 20040309
  Transmission Date: 20041129
  Serious: No
  Sender: FDA-Public Use
  Company Number: 2004S1000033

PATIENT
  Age: 58 Year
  Sex: Male
  Weight: 104 kg

DRUGS (9)
  1. CUBICIN [Suspect]
     Indication: POSTOPERATIVE INFECTION
     Dosage: 416 MG; QD; IV
     Route: 042
     Dates: start: 20040116, end: 20040211
  2. CELEBREX [Concomitant]
  3. ZOLOFT [Concomitant]
  4. VICODIN [Concomitant]
  5. VANCOMYCIN [Concomitant]
  6. LEVAQUIN [Concomitant]
  7. ROCEPHIN [Concomitant]
  8. .. [Concomitant]
  9. ,,, [Concomitant]

REACTIONS (4)
  - C-REACTIVE PROTEIN INCREASED [None]
  - CHEST PAIN [None]
  - ERYTHEMA [None]
  - PRURITUS [None]
